FAERS Safety Report 20699077 (Version 1)
Quarter: 2022Q2

REPORT INFORMATION
  Report Type: Report from Study
  Country: CO (occurrence: CO)
  Receive Date: 20220412
  Receipt Date: 20220412
  Transmission Date: 20220720
  Serious: Yes (Hospitalization, Other)
  Sender: FDA-Public Use
  Company Number: CO-ABBVIE-21K-036-4119818-00

PATIENT
  Sex: Female
  Weight: 48 kg

DRUGS (7)
  1. HUMIRA [Suspect]
     Active Substance: ADALIMUMAB
     Indication: Rheumatoid arthritis
     Route: 058
     Dates: start: 20220315
  2. HUMIRA [Suspect]
     Active Substance: ADALIMUMAB
     Indication: Rheumatoid arthritis
     Route: 058
     Dates: start: 20090623
  3. DEFLAZACORT [Concomitant]
     Active Substance: DEFLAZACORT
     Indication: Product used for unknown indication
     Route: 048
  4. INFLAXEN [Concomitant]
     Indication: Product used for unknown indication
     Route: 048
  5. ACETAMINOPHEN\HYDROCODONE [Concomitant]
     Active Substance: ACETAMINOPHEN\HYDROCODONE
     Indication: Product used for unknown indication
     Route: 048
  6. PREDNISOLONE [Concomitant]
     Active Substance: PREDNISOLONE
     Indication: Product used for unknown indication
     Route: 048
  7. HYDROCHLOROTHIAZIDE [Concomitant]
     Active Substance: HYDROCHLOROTHIAZIDE
     Indication: Product used for unknown indication

REACTIONS (11)
  - Intervertebral disc disorder [Not Recovered/Not Resolved]
  - Lumbar hernia [Not Recovered/Not Resolved]
  - Gallbladder disorder [Recovered/Resolved]
  - Gait disturbance [Not Recovered/Not Resolved]
  - Musculoskeletal disorder [Not Recovered/Not Resolved]
  - Limb discomfort [Not Recovered/Not Resolved]
  - Pain in extremity [Not Recovered/Not Resolved]
  - Spinal pain [Not Recovered/Not Resolved]
  - Gait disturbance [Unknown]
  - Hypophagia [Not Recovered/Not Resolved]
  - Arthralgia [Not Recovered/Not Resolved]

NARRATIVE: CASE EVENT DATE: 20200101
